FAERS Safety Report 14362626 (Version 1)
Quarter: 2018Q1

REPORT INFORMATION
  Report Type: Spontaneous
  Country: DE (occurrence: DE)
  Receive Date: 20180108
  Receipt Date: 20180108
  Transmission Date: 20180509
  Serious: Yes (Hospitalization, Disabling)
  Sender: FDA-Public Use
  Company Number: DE-SA-2017SA242195

PATIENT
  Age: 56 Year
  Sex: Female
  Weight: 121 kg

DRUGS (15)
  1. PRALUENT [Suspect]
     Active Substance: ALIROCUMAB
     Indication: LOW DENSITY LIPOPROTEIN INCREASED
     Route: 058
     Dates: start: 20160927, end: 20171112
  2. JANUVIA [Concomitant]
     Active Substance: SITAGLIPTIN PHOSPHATE
     Route: 065
  3. XIPAMIDE [Concomitant]
     Active Substance: XIPAMIDE
     Route: 065
  4. ALLOPURINOL. [Concomitant]
     Active Substance: ALLOPURINOL
     Route: 065
  5. MAGNESIUM [Concomitant]
     Active Substance: MAGNESIUM
     Route: 065
  6. GLYCEROL TRINITRATE [Concomitant]
     Dosage: FORM: SOLUTION
     Route: 065
  7. METOPROLOL SUCCINATE. [Concomitant]
     Active Substance: METOPROLOL SUCCINATE
     Route: 065
  8. ATORVASTATIN [Concomitant]
     Active Substance: ATORVASTATIN
  9. SPIRONOLACTONE. [Concomitant]
     Active Substance: SPIRONOLACTONE
     Route: 065
  10. TORASEMIDE [Concomitant]
     Active Substance: TORSEMIDE
     Route: 065
  11. CANDESARTAN CILEXETIL. [Concomitant]
     Active Substance: CANDESARTAN CILEXETIL
     Route: 065
  12. ALIROCUMAB PREFILLED PEN [Suspect]
     Active Substance: ALIROCUMAB
     Indication: LOW DENSITY LIPOPROTEIN INCREASED
     Dates: start: 20160927, end: 20171112
  13. SINTROM [Concomitant]
     Active Substance: ACENOCOUMAROL
     Route: 065
  14. L-THYROXIN [Concomitant]
     Active Substance: LEVOTHYROXINE SODIUM
     Route: 065
  15. TAVOR (LORAZEPAM) [Concomitant]
     Active Substance: LORAZEPAM
     Route: 065

REACTIONS (38)
  - Neutrophil count increased [Unknown]
  - Blood fibrinogen increased [Unknown]
  - Vertigo [Unknown]
  - Fatigue [Unknown]
  - Arthropod bite [Unknown]
  - Inflammation [Unknown]
  - General physical health deterioration [Unknown]
  - Lymphocyte count decreased [Unknown]
  - Blood lactate dehydrogenase increased [Unknown]
  - Prothrombin time prolonged [Unknown]
  - Asthenia [Unknown]
  - Peripheral swelling [Unknown]
  - Serum sickness [Unknown]
  - C-reactive protein increased [Unknown]
  - Myalgia [Unknown]
  - Condition aggravated [Unknown]
  - Cardiac failure [Unknown]
  - White blood cell count increased [Unknown]
  - Gamma-glutamyltransferase increased [Unknown]
  - Pain in extremity [Unknown]
  - Headache [Unknown]
  - Arthralgia [Unknown]
  - Pyrexia [Unknown]
  - Weight decreased [Unknown]
  - Erythema [Unknown]
  - Staphylococcal infection [Unknown]
  - Pain [Unknown]
  - Pleural effusion [Unknown]
  - Enterococcal infection [Unknown]
  - Aspartate aminotransferase increased [Unknown]
  - Mitral valve stenosis [Unknown]
  - Enterobacter test positive [Unknown]
  - Mobility decreased [Unknown]
  - Gait disturbance [Unknown]
  - Chills [Unknown]
  - Night sweats [Unknown]
  - Mitral valve sclerosis [Unknown]
  - Mitral valve incompetence [Unknown]

NARRATIVE: CASE EVENT DATE: 2017
